FAERS Safety Report 19484307 (Version 1)
Quarter: 2021Q3

REPORT INFORMATION
  Report Type: Other
  Country: CN (occurrence: CN)
  Receive Date: 20210702
  Receipt Date: 20210702
  Transmission Date: 20211014
  Serious: Yes (Other)
  Sender: FDA-Public Use
  Company Number: CN-ASTELLAS-2021US023761

PATIENT
  Age: 58 Year
  Sex: Male
  Weight: 50 kg

DRUGS (12)
  1. PROGRAF [Suspect]
     Active Substance: TACROLIMUS
     Indication: PARKINSON^S DISEASE
     Route: 048
     Dates: start: 20210524, end: 20210525
  2. MYCOPHENOLATE MOFETIL. [Suspect]
     Active Substance: MYCOPHENOLATE MOFETIL
     Indication: PARKINSON^S DISEASE
     Dosage: 0.5 G, ONCE DAILY
     Route: 048
     Dates: start: 20210524, end: 20210601
  3. MADOPAR [Suspect]
     Active Substance: BENSERAZIDE HYDROCHLORIDE\LEVODOPA
     Indication: PROPHYLAXIS AGAINST TRANSPLANT REJECTION
  4. ATORVASTATIN [Concomitant]
     Active Substance: ATORVASTATIN
     Indication: PROPHYLAXIS AGAINST TRANSPLANT REJECTION
  5. PLAVIX [Concomitant]
     Active Substance: CLOPIDOGREL BISULFATE
     Indication: PARKINSON^S DISEASE
     Route: 048
     Dates: start: 20210524, end: 20210611
  6. MADOPAR [Suspect]
     Active Substance: BENSERAZIDE HYDROCHLORIDE\LEVODOPA
     Indication: PARKINSON^S DISEASE
     Route: 048
     Dates: start: 20210524, end: 20210525
  7. ATORVASTATIN [Concomitant]
     Active Substance: ATORVASTATIN
     Indication: PARKINSON^S DISEASE
     Route: 048
     Dates: start: 20210524, end: 20210611
  8. MEDROL [Suspect]
     Active Substance: METHYLPREDNISOLONE
     Indication: PARKINSON^S DISEASE
     Route: 048
     Dates: start: 20210524, end: 20210611
  9. MEDROL [Suspect]
     Active Substance: METHYLPREDNISOLONE
     Indication: PROPHYLAXIS AGAINST TRANSPLANT REJECTION
  10. PLAVIX [Concomitant]
     Active Substance: CLOPIDOGREL BISULFATE
     Indication: PROPHYLAXIS AGAINST TRANSPLANT REJECTION
  11. PROGRAF [Suspect]
     Active Substance: TACROLIMUS
     Indication: PROPHYLAXIS AGAINST TRANSPLANT REJECTION
  12. MYCOPHENOLATE MOFETIL. [Suspect]
     Active Substance: MYCOPHENOLATE MOFETIL
     Indication: PROPHYLAXIS AGAINST TRANSPLANT REJECTION

REACTIONS (3)
  - Cataract [Recovering/Resolving]
  - Product use in unapproved indication [Unknown]
  - Glaucoma [Recovering/Resolving]

NARRATIVE: CASE EVENT DATE: 20210524
